FAERS Safety Report 6624878-6 (Version None)
Quarter: 2010Q1

REPORT INFORMATION
  Report Type: 
  Country: None (occurrence: None)
  Receive Date: 20100310
  Receipt Date: 20100308
  Transmission Date: 20100710
  Serious: Yes (Death)
  Sender: FDA-Public Use
  Company Number: US-RB-003284-10

PATIENT
  Sex: Female

DRUGS (5)
  1. SUBUTEX [Suspect]
     Indication: DRUG DEPENDENCE
     Route: 060
     Dates: start: 20081201, end: 20091101
  2. SUBUTEX [Suspect]
     Route: 060
     Dates: start: 20091101
  3. SEROQUEL [Concomitant]
     Indication: DEPRESSION
     Route: 065
  4. LYRICA [Concomitant]
     Indication: PAIN
     Route: 065
  5. DOXEPIN HCL [Concomitant]
     Indication: DEPRESSION
     Dosage: AT BEDTIME
     Route: 065

REACTIONS (1)
  - CARDIAC FAILURE [None]
